FAERS Safety Report 17565084 (Version 2)
Quarter: 2020Q2

REPORT INFORMATION
  Report Type: Spontaneous
  Country: US (occurrence: US)
  Receive Date: 20200320
  Receipt Date: 20200519
  Transmission Date: 20200713
  Serious: No
  Sender: FDA-Public Use
  Company Number: US-MYLANLABS-2020M1027111

PATIENT
  Sex: Female
  Weight: 52.15 kg

DRUGS (2)
  1. SULFAMETHOXAZOLE AND TRIMETHOPRIM [Suspect]
     Active Substance: SULFAMETHOXAZOLE\TRIMETHOPRIM
     Indication: CHRONIC OBSTRUCTIVE PULMONARY DISEASE
     Dosage: UNK
  2. WIXELA INHUB [Suspect]
     Active Substance: FLUTICASONE PROPIONATE\SALMETEROL XINAFOATE
     Indication: PRODUCT USED FOR UNKNOWN INDICATION
     Dosage: UNK
     Route: 055

REACTIONS (10)
  - Tremor [Unknown]
  - Palpitations [Unknown]
  - Diplopia [Unknown]
  - Pulmonary pain [Unknown]
  - Burning sensation [Unknown]
  - Dizziness [Unknown]
  - Drug ineffective [Unknown]
  - Product substitution issue [Unknown]
  - Chest pain [Unknown]
  - Asthenia [Unknown]
